FAERS Safety Report 6557769-X (Version None)
Quarter: 2010Q1

REPORT INFORMATION
  Report Type: 
  Country: None (occurrence: None)
  Receive Date: 20100129
  Receipt Date: 20100120
  Transmission Date: 20100710
  Serious: No
  Sender: FDA-Public Use
  Company Number: CH-ASTRAZENECA-2010SE03092

PATIENT
  Age: 19 Year
  Sex: Female

DRUGS (13)
  1. SEROQUEL XR [Suspect]
     Dosage: 100-400 MG DAILY
     Route: 048
     Dates: start: 20090515, end: 20090614
  2. SEROQUEL XR [Suspect]
     Route: 048
     Dates: start: 20090615, end: 20090824
  3. SEROQUEL XR [Suspect]
     Dosage: 700-800 MG DAILY
     Route: 048
     Dates: start: 20090825, end: 20091001
  4. SEROQUEL XR [Suspect]
     Dosage: 900-1000 MG DAILY
     Route: 048
     Dates: start: 20091002, end: 20091020
  5. SEROQUEL XR [Suspect]
     Route: 048
     Dates: start: 20091021, end: 20091022
  6. SEROQUEL XR [Suspect]
     Route: 048
     Dates: start: 20091023, end: 20091108
  7. SEROQUEL XR [Suspect]
     Route: 048
     Dates: start: 20091109, end: 20091110
  8. DEPAKENE [Suspect]
     Dosage: 300-1200 MG DAILY
     Route: 048
     Dates: start: 20090612, end: 20090827
  9. DEPAKENE [Suspect]
     Route: 048
     Dates: start: 20090828, end: 20090901
  10. DEPAKENE [Suspect]
     Route: 048
     Dates: start: 20090902, end: 20090922
  11. DEPAKENE [Suspect]
     Route: 048
     Dates: start: 20090923, end: 20091014
  12. DEPAKENE [Suspect]
     Route: 048
     Dates: start: 20091015, end: 20091203
  13. MINERVA [Concomitant]

REACTIONS (2)
  - ALOPECIA [None]
  - THROMBOCYTOPENIA [None]
